FAERS Safety Report 22601917 (Version 1)
Quarter: 2023Q2

REPORT INFORMATION
  Report Type: Spontaneous
  Country: CN (occurrence: CN)
  Receive Date: 20230614
  Receipt Date: 20230614
  Transmission Date: 20230721
  Serious: Yes (Hospitalization, Other)
  Sender: FDA-Public Use
  Company Number: CN-ADR-3505021027230202300888

PATIENT

DRUGS (6)
  1. TRILACICLIB [Suspect]
     Active Substance: TRILACICLIB
     Indication: Nasopharyngeal cancer
     Dosage: 300 MG
     Route: 042
     Dates: start: 20230323, end: 20230323
  2. GEMCITABINE HYDROCHLORIDE [Suspect]
     Active Substance: GEMCITABINE HYDROCHLORIDE
     Indication: Nasopharyngeal cancer
     Dosage: 1.4 G
     Route: 042
     Dates: start: 20230323, end: 20230323
  3. CISPLATIN [Suspect]
     Active Substance: CISPLATIN
     Indication: Nasopharyngeal cancer
     Dosage: 40 MG
     Route: 042
     Dates: start: 20230323, end: 20230323
  4. SODIUM CHLORIDE [Concomitant]
     Active Substance: SODIUM CHLORIDE
     Indication: Vehicle solution use
     Dosage: 250 ML, QD
     Route: 042
     Dates: start: 20230323, end: 20230323
  5. SODIUM CHLORIDE [Concomitant]
     Active Substance: SODIUM CHLORIDE
     Dosage: 250 ML, QD
     Route: 042
     Dates: start: 20230323, end: 20230323
  6. SODIUM CHLORIDE [Concomitant]
     Active Substance: SODIUM CHLORIDE
     Dosage: 250 ML, QD
     Route: 042
     Dates: start: 20230323, end: 20230323

REACTIONS (2)
  - Platelet count decreased [Recovered/Resolved]
  - Bicytopenia [Recovered/Resolved]

NARRATIVE: CASE EVENT DATE: 20230403
